FAERS Safety Report 15585719 (Version 1)
Quarter: 2018Q4

REPORT INFORMATION
  Report Type: Spontaneous
  Country: US (occurrence: US)
  Receive Date: 20181105
  Receipt Date: 20181105
  Transmission Date: 20190205
  Serious: Yes (Hospitalization)
  Sender: FDA-Public Use
  Company Number: US-PFIZER INC-2018444538

PATIENT
  Age: 34 Year
  Sex: Female
  Weight: 52.16 kg

DRUGS (2)
  1. ZYVOX [Suspect]
     Active Substance: LINEZOLID
     Indication: CARDITIS
  2. ZYVOX [Suspect]
     Active Substance: LINEZOLID
     Indication: SEPTIC SHOCK
     Dosage: 600 MG, 2X/DAY [FOR AT LEAST 30 DAYS]

REACTIONS (2)
  - Malaise [Unknown]
  - Product use issue [Unknown]
